FAERS Safety Report 6663768-X (Version None)
Quarter: 2010Q1

REPORT INFORMATION
  Report Type: 
  Country: None (occurrence: None)
  Receive Date: 20100331
  Receipt Date: 20100331
  Transmission Date: 20100710
  Serious: Yes (Hospitalization)
  Sender: FDA-Public Use
  Company Number: None

PATIENT
  Age: 49 Year
  Sex: Female
  Weight: 75.2971 kg

DRUGS (23)
  1. MYFORTIC [Suspect]
     Indication: ABDOMINAL DISCOMFORT
     Dosage: 720 MG TWICE DAILY PO
     Route: 048
     Dates: start: 20100302, end: 20100319
  2. MYFORTIC [Suspect]
     Indication: ABDOMINAL DISCOMFORT
     Dosage: 360 MG TWICE DAILY PO
     Route: 048
  3. ATROVENT [Concomitant]
  4. ASPIRIN [Concomitant]
  5. ASOPT [Concomitant]
  6. AZITHROMYCIN [Concomitant]
  7. BENZONATATE [Concomitant]
  8. TESSALON [Concomitant]
  9. CALCIUM [Concomitant]
  10. DAPSONE [Concomitant]
  11. ASPART INSULIN BLOOD GLUCOSE [Concomitant]
  12. EPOETIN ALPHA INJ [Concomitant]
  13. LEVAQUIN [Concomitant]
  14. LYRICA [Concomitant]
  15. NEXIUM [Concomitant]
  16. NITROGLYCERIN [Concomitant]
  17. NYSTATIN [Concomitant]
  18. PREDNISONE TAB [Concomitant]
  19. PROGRAF [Concomitant]
  20. VITAMIN D [Concomitant]
  21. WELLBUTIRIN XL [Concomitant]
  22. XALATAN [Concomitant]
  23. ASOPT [Concomitant]

REACTIONS (4)
  - CONDITION AGGRAVATED [None]
  - DIARRHOEA [None]
  - HAEMODIALYSIS [None]
  - RENAL FAILURE ACUTE [None]
